FAERS Safety Report 4531859-5 (Version None)
Quarter: 2004Q4

REPORT INFORMATION
  Report Type: 
  Country: None (occurrence: None)
  Receive Date: 20041220
  Receipt Date: 20041207
  Transmission Date: 20050328
  Serious: Yes (Other)
  Sender: FDA-Public Use
  Company Number: DE-JNJFOC-20041202143

PATIENT
  Age: 13 Year
  Sex: Male

DRUGS (4)
  1. CONCERTA [Suspect]
     Route: 049
  2. CONCERTA [Suspect]
     Route: 049
  3. CONCERTA [Suspect]
     Route: 049
  4. CONCERTA [Suspect]
     Route: 049

REACTIONS (5)
  - ABDOMINAL DISCOMFORT [None]
  - ASTHENIA [None]
  - HYPOAESTHESIA [None]
  - SLEEP DISORDER [None]
  - TIC [None]
